FAERS Safety Report 8884980 (Version 3)
Quarter: 2012Q4

REPORT INFORMATION
  Report Type: Report from Study
  Country: JP (occurrence: JP)
  Receive Date: 20121030
  Receipt Date: 20121030
  Transmission Date: 20130627
  Serious: Yes (Hospitalization)
  Sender: FDA-Public Use
  Company Number: JP-BIOGENIDEC-2012BI017536

PATIENT
  Age: 20 Year
  Sex: Female

DRUGS (8)
  1. TYSABRI [Suspect]
     Indication: RELAPSING-REMITTING MULTIPLE SCLEROSIS
     Dates: start: 20120514
  2. PAXIL [Concomitant]
     Dates: start: 200901
  3. SYMMETREL [Concomitant]
     Dates: start: 20101021
  4. GABAPEN [Concomitant]
     Dates: start: 20110610
  5. LONOXIN [Concomitant]
     Dates: start: 20110620
  6. ALLEGRA [Concomitant]
     Dates: start: 20120601
  7. PRIMPERAN [Concomitant]
     Dates: start: 20120601
  8. MERISLON [Concomitant]
     Dates: start: 20120611

REACTIONS (4)
  - Convulsion [Recovered/Resolved]
  - Meningitis aseptic [Recovered/Resolved]
  - Mycoplasma infection [Not Recovered/Not Resolved]
  - Multiple sclerosis relapse [Not Recovered/Not Resolved]
